FAERS Safety Report 9145360 (Version 1)
Quarter: 2013Q1

REPORT INFORMATION
  Report Type: Spontaneous
  Country: US (occurrence: None)
  Receive Date: 20130226
  Receipt Date: 20130226
  Transmission Date: 20140127
  Serious: Yes (Other)
  Sender: FDA-Public Use
  Company Number: None

PATIENT
  Age: 9 Year
  Sex: Male
  Weight: 30.84 kg

DRUGS (1)
  1. DESMOPRESSIN 0.2MG [Suspect]
     Indication: ENURESIS
     Dates: start: 20130130, end: 20130130

REACTIONS (6)
  - Chest pain [None]
  - Dyspnoea [None]
  - Nightmare [None]
  - Dizziness [None]
  - Epistaxis [None]
  - Hypertension [None]
